FAERS Safety Report 6102557-1 (Version None)
Quarter: 2009Q1

REPORT INFORMATION
  Report Type: 
  Country: None (occurrence: None)
  Receive Date: 20090304
  Receipt Date: 20080820
  Transmission Date: 20090719
  Serious: No
  Sender: FDA-Public Use
  Company Number: A0743535A

PATIENT
  Age: 58 Year
  Sex: Male

DRUGS (4)
  1. REQUIP [Suspect]
     Indication: PARKINSON'S DISEASE
     Dosage: 3MG THREE TIMES PER DAY
     Route: 048
     Dates: start: 20070201, end: 20080808
  2. REQUIP XL [Suspect]
     Indication: PARKINSON'S DISEASE
     Dosage: 8MG PER DAY
     Route: 048
     Dates: start: 20080808
  3. SELEGILINE [Concomitant]
  4. VITAMINS [Concomitant]

REACTIONS (2)
  - EXCESSIVE SEXUAL FANTASIES [None]
  - PROMISCUITY [None]
